FAERS Safety Report 6572105-0 (Version None)
Quarter: 2010Q1

REPORT INFORMATION
  Report Type: 
  Country: None (occurrence: None)
  Receive Date: 20100205
  Receipt Date: 20100121
  Transmission Date: 20100710
  Serious: Yes (Other)
  Sender: FDA-Public Use
  Company Number: PHHY2010CA04080

PATIENT
  Sex: Female

DRUGS (1)
  1. EXELON [Suspect]
     Dosage: 10 CM2
     Route: 062
     Dates: start: 20091212, end: 20091221

REACTIONS (2)
  - ABNORMAL BEHAVIOUR [None]
  - GENERAL PHYSICAL HEALTH DETERIORATION [None]
